FAERS Safety Report 20592294 (Version 1)
Quarter: 2022Q1

REPORT INFORMATION
  Report Type: Spontaneous
  Country: US (occurrence: None)
  Receive Date: 20220314
  Receipt Date: 20220314
  Transmission Date: 20220423
  Serious: No
  Sender: FDA-Public Use
  Company Number: US-ROCHE-2861252

PATIENT
  Sex: Female

DRUGS (1)
  1. XOLAIR [Suspect]
     Active Substance: OMALIZUMAB
     Indication: Asthma
     Route: 058
     Dates: start: 20200810

REACTIONS (7)
  - Tachycardia [Unknown]
  - Illness [Unknown]
  - Pruritus [Unknown]
  - Rash [Unknown]
  - Incorrect drug administration rate [Unknown]
  - Drug ineffective [Unknown]
  - Thermal burn [Unknown]
